FAERS Safety Report 8152702-1 (Version None)
Quarter: 2012Q1

REPORT INFORMATION
  Report Type: 
  Country: None (occurrence: None)
  Receive Date: 20120221
  Receipt Date: 20120209
  Transmission Date: 20120608
  Serious: Yes (Other)
  Sender: FDA-Public Use
  Company Number: JP-JNJFOC-20120109406

PATIENT
  Sex: Female
  Weight: 56 kg

DRUGS (13)
  1. LOXONIN [Concomitant]
     Indication: ANALGESIC THERAPY
     Dosage: ROUTE OF ADMINISTRATION: ORAL AND 1-2 SHEETS, OD.
     Route: 065
     Dates: start: 20100803
  2. LOXONIN [Concomitant]
     Indication: RHEUMATOID ARTHRITIS
     Dosage: ROUTE OF ADMINISTRATION: ORAL AND 1-2 SHEETS, OD.
     Route: 065
     Dates: start: 20100803
  3. MUCOSTA [Concomitant]
     Indication: PROPHYLAXIS
     Route: 048
     Dates: start: 20100803
  4. FOLIC ACID [Concomitant]
     Indication: RHEUMATOID ARTHRITIS
     Route: 048
     Dates: start: 20100803
  5. LIMETHASON [Concomitant]
     Indication: PROPHYLAXIS
     Route: 065
     Dates: start: 20111115, end: 20111115
  6. REMICADE [Suspect]
     Indication: RHEUMATOID ARTHRITIS
     Route: 042
     Dates: start: 20101117
  7. EVISTA [Concomitant]
     Indication: OSTEOPOROSIS
     Route: 048
     Dates: start: 20110222
  8. REMICADE [Suspect]
     Route: 042
     Dates: start: 20111115
  9. METHOTREXATE [Concomitant]
     Indication: RHEUMATOID ARTHRITIS
     Route: 048
     Dates: start: 20100803
  10. PREDNISOLONE [Concomitant]
     Indication: RHEUMATOID ARTHRITIS
     Route: 048
     Dates: start: 20100803
  11. LIMETHASON [Concomitant]
     Indication: PREMEDICATION
     Route: 065
     Dates: start: 20111115, end: 20111115
  12. TALION [Concomitant]
     Indication: PROPHYLAXIS
     Route: 048
     Dates: start: 20111111, end: 20111115
  13. SODIUM CHLORIDE [Concomitant]
     Indication: PROPHYLAXIS
     Route: 065
     Dates: start: 20111115, end: 20111115

REACTIONS (3)
  - INFUSION RELATED REACTION [None]
  - RESPIRATORY DISORDER [None]
  - FLUSHING [None]
